FAERS Safety Report 20846756 (Version 1)
Quarter: 2022Q2

REPORT INFORMATION
  Report Type: Other
  Country: US (occurrence: None)
  Receive Date: 20220519
  Receipt Date: 20220519
  Transmission Date: 20220720
  Serious: Yes (Other)
  Sender: FDA-Public Use
  Company Number: US-ROCHE-3092933

PATIENT
  Sex: Female

DRUGS (3)
  1. OCREVUS [Suspect]
     Active Substance: OCRELIZUMAB
     Indication: Multiple sclerosis
     Dosage: INITIAL DOSE 300 MG DAY 1 AND DAY 15, 600 MG EVERY 6 MONTHS (PRESCRIBED)
     Route: 042
     Dates: end: 20211014
  2. COPAXONE [Concomitant]
     Active Substance: GLATIRAMER ACETATE
  3. TECFIDERA [Concomitant]
     Active Substance: DIMETHYL FUMARATE

REACTIONS (1)
  - Herpes zoster [Not Recovered/Not Resolved]
